FAERS Safety Report 8123486-8 (Version None)
Quarter: 2012Q1

REPORT INFORMATION
  Report Type: 
  Country: None (occurrence: None)
  Receive Date: 20120208
  Receipt Date: 20120201
  Transmission Date: 20120608
  Serious: Yes (Hospitalization)
  Sender: FDA-Public Use
  Company Number: PHHY2012FR005632

PATIENT
  Sex: Male
  Weight: 72 kg

DRUGS (10)
  1. CANDESARTAN CILEXETIL [Concomitant]
     Dosage: 16 MG, UNK
  2. JANUVIA [Concomitant]
  3. RASILEZ [Suspect]
     Dosage: 150 MG, QD
     Route: 048
     Dates: start: 20100901
  4. RASILEZ [Suspect]
     Dosage: 300 MG, QD
     Dates: end: 20101201
  5. RILMENIDINE [Concomitant]
     Dosage: 1 MG, UNK
  6. INDAPAMIDE [Concomitant]
     Dosage: 1.5 MG, UNK
  7. CANDESARTAN CILEXETIL [Concomitant]
     Dosage: UNK
  8. NEBIVOLOL HCL [Concomitant]
     Dosage: 5 MG, UNK
  9. CRESTOR [Concomitant]
  10. GLYBURIDE [Concomitant]

REACTIONS (3)
  - VIITH NERVE PARALYSIS [None]
  - CEREBROVASCULAR ACCIDENT [None]
  - APHASIA [None]
